FAERS Safety Report 13355415 (Version 1)
Quarter: 2017Q1

REPORT INFORMATION
  Report Type: Report from Study
  Country: FR (occurrence: FR)
  Receive Date: 20170321
  Receipt Date: 20170321
  Transmission Date: 20170429
  Serious: Yes (Hospitalization, Other)
  Sender: FDA-Public Use
  Company Number: FR-MYLANLABS-2017M1017154

PATIENT

DRUGS (3)
  1. PREDNISONE. [Suspect]
     Active Substance: PREDNISONE
     Dosage: 30MG/DAY
     Route: 048
  2. PREDNISONE. [Suspect]
     Active Substance: PREDNISONE
     Indication: ACNE FULMINANS
     Dosage: 0.5 MG/KG/DAY; 20MG/DAY, DOSE INCREASED PROGRESSIVELY TO 30 MG/DAY
     Route: 048
  3. ISOTRETINOIN [Suspect]
     Active Substance: ISOTRETINOIN
     Indication: ACNE
     Dosage: 0.2 MG/KG/DAY; 10MG/DAY
     Route: 065

REACTIONS (3)
  - Acne fulminans [Recovered/Resolved]
  - Dyslipidaemia [Unknown]
  - Weight increased [Unknown]
